FAERS Safety Report 6544328-8 (Version None)
Quarter: 2010Q1

REPORT INFORMATION
  Report Type: 
  Country: None (occurrence: None)
  Receive Date: 20100120
  Receipt Date: 20100120
  Transmission Date: 20100710
  Serious: Yes (Other)
  Sender: FDA-Public Use
  Company Number: None

PATIENT
  Age: 67 Year
  Sex: Male
  Weight: 77.1115 kg

DRUGS (3)
  1. OXALIPLATIN [Suspect]
     Indication: CHEMOTHERAPY
     Dosage: 175 ,MG EVERY TWO WEEKS IV DRIP
     Route: 041
     Dates: start: 20090609, end: 20090918
  2. OXALIPLATIN [Suspect]
     Indication: RECTAL CANCER
     Dosage: 175 ,MG EVERY TWO WEEKS IV DRIP
     Route: 041
     Dates: start: 20090609, end: 20090918
  3. OXALIPLATIN [Suspect]
     Indication: SURGERY
     Dosage: 175 ,MG EVERY TWO WEEKS IV DRIP
     Route: 041
     Dates: start: 20090609, end: 20090918

REACTIONS (5)
  - BALANCE DISORDER [None]
  - FALL [None]
  - NERVE INJURY [None]
  - PERIPHERAL SENSORY NEUROPATHY [None]
  - URINARY INCONTINENCE [None]
